FAERS Safety Report 13759885 (Version 1)
Quarter: 2017Q3

REPORT INFORMATION
  Report Type: Spontaneous
  Country: BR (occurrence: BR)
  Receive Date: 20170717
  Receipt Date: 20170717
  Transmission Date: 20171127
  Serious: Yes (Other)
  Sender: FDA-Public Use
  Company Number: BR-BRISTOL-MYERS SQUIBB COMPANY-BMS-2017-062915

PATIENT
  Sex: Female

DRUGS (3)
  1. GLIFAGE XR [Suspect]
     Active Substance: METFORMIN HYDROCHLORIDE
     Indication: DIABETES MELLITUS
     Dosage: 1 TAB, UNK
     Route: 065
  2. PYRIDOXAMINE HYDROCHLORIDE\THIAMINE HYDROCHLORIDE\CYANOCOBALAMIN [Concomitant]
     Active Substance: CYANOCOBALAMIN\PYRIDOXAMINE HYDROCHLORIDE\THIAMINE HYDROCHLORIDE
     Indication: PAIN IN EXTREMITY
     Dosage: 5000 ?G, UNK
     Route: 048
     Dates: start: 20170630
  3. GLIFAGE [Suspect]
     Active Substance: METFORMIN HYDROCHLORIDE
     Indication: DIABETES MELLITUS
     Dosage: 1 TAB, BID
     Route: 065

REACTIONS (1)
  - Carotid artery occlusion [Unknown]

NARRATIVE: CASE EVENT DATE: 2003
